FAERS Safety Report 7570717-9 (Version None)
Quarter: 2011Q2

REPORT INFORMATION
  Report Type: 
  Country: None (occurrence: None)
  Receive Date: 20110622
  Receipt Date: 20110622
  Transmission Date: 20111010
  Serious: Yes (Other)
  Sender: FDA-Public Use
  Company Number: None

PATIENT
  Sex: Female
  Weight: 63.6 kg

DRUGS (1)
  1. LEVAQUIN [Suspect]
     Indication: SURGERY
     Dosage: 750 MG DAILY 7 DAYS 057
     Dates: start: 20101202, end: 20101208

REACTIONS (23)
  - ABASIA [None]
  - PAIN [None]
  - ABDOMINAL PAIN [None]
  - MUSCULOSKELETAL PAIN [None]
  - MEMORY IMPAIRMENT [None]
  - MUSCLE SPASMS [None]
  - FAECES PALE [None]
  - CHROMATURIA [None]
  - FATIGUE [None]
  - DIARRHOEA [None]
  - ASTHENIA [None]
  - FACIAL PAIN [None]
  - PAIN IN EXTREMITY [None]
  - CONTUSION [None]
  - ANXIETY [None]
  - BONE PAIN [None]
  - JOINT SWELLING [None]
  - SKIN DISCOLOURATION [None]
  - DECREASED APPETITE [None]
  - PANIC ATTACK [None]
  - STRESS [None]
  - ARTHRALGIA [None]
  - MIDDLE INSOMNIA [None]
